FAERS Safety Report 7927360-9 (Version None)
Quarter: 2011Q4

REPORT INFORMATION
  Report Type: 
  Country: None (occurrence: None)
  Receive Date: 20111118
  Receipt Date: 20111114
  Transmission Date: 20120403
  Serious: Yes (Death, Other)
  Sender: FDA-Public Use
  Company Number: PHEH2011US009037

PATIENT
  Sex: Female

DRUGS (2)
  1. EXJADE [Suspect]
     Indication: NEOPLASM
     Dosage: 1000 MG, DAILY
     Route: 048
     Dates: start: 20100412
  2. EXJADE [Suspect]
     Indication: IRON OVERLOAD

REACTIONS (5)
  - FALL [None]
  - FUNGAL ENDOCARDITIS [None]
  - TRICUSPID VALVE INCOMPETENCE [None]
  - BACTERAEMIA [None]
  - HIP FRACTURE [None]
